FAERS Safety Report 12998513 (Version 3)
Quarter: 2017Q4

REPORT INFORMATION
  Report Type: Spontaneous
  Country: SD (occurrence: SD)
  Receive Date: 20161205
  Receipt Date: 20171222
  Transmission Date: 20180320
  Serious: Yes (Hospitalization)
  Sender: FDA-Public Use
  Company Number: SD-JNJFOC-20161200839

PATIENT
  Age: 38 Year
  Sex: Male

DRUGS (6)
  1. AMPHOTERICIN B. [Suspect]
     Active Substance: AMPHOTERICIN B
     Indication: MYCETOMA MYCOTIC
     Dosage: FOR FOUR WEEKS WITH SOME IMPROVEMENT
     Route: 042
  2. ITRACONAZOLE. [Suspect]
     Active Substance: ITRACONAZOLE
     Indication: MYCETOMA MYCOTIC
     Dosage: 2012
     Route: 065
     Dates: start: 2012
  3. KETOCONAZOLE. [Suspect]
     Active Substance: KETOCONAZOLE
     Indication: MYCETOMA MYCOTIC
     Dosage: DISCONTINUED AFTER THREE MONTHS IN 2003
     Route: 065
     Dates: start: 2003
  4. KETOCONAZOLE. [Suspect]
     Active Substance: KETOCONAZOLE
     Indication: MYCETOMA MYCOTIC
     Dosage: 2009
     Route: 065
     Dates: start: 2009
  5. ITRACONAZOLE. [Suspect]
     Active Substance: ITRACONAZOLE
     Indication: MYCETOMA MYCOTIC
     Route: 065
  6. VORICONAZOLE. [Suspect]
     Active Substance: VORICONAZOLE
     Indication: MYCETOMA MYCOTIC
     Dosage: 6 MONTHS
     Route: 065

REACTIONS (8)
  - Off label use [Unknown]
  - Drug resistance [Unknown]
  - Chapped lips [Unknown]
  - Product use in unapproved indication [Unknown]
  - Lip dry [Unknown]
  - Hepatic function abnormal [Unknown]
  - Gynaecomastia [Unknown]
  - Skin hyperpigmentation [Unknown]
